FAERS Safety Report 6174117-8 (Version None)
Quarter: 2009Q2

REPORT INFORMATION
  Report Type: 
  Country: None (occurrence: None)
  Receive Date: 20090430
  Receipt Date: 20090421
  Transmission Date: 20091009
  Serious: Yes (Hospitalization)
  Sender: FDA-Public Use
  Company Number: CA-PFIZER INC-2009172519

PATIENT

DRUGS (15)
  1. MARAVIROC [Suspect]
     Indication: HIV INFECTION
     Dosage: 150 MG, 2X/DAY
     Route: 048
     Dates: start: 20050919
  2. TENOFOVIR [Concomitant]
     Dosage: UNK
     Route: 048
     Dates: start: 20070128
  3. ATAZANAVIR [Concomitant]
     Dosage: UNK
     Route: 048
     Dates: start: 20070128
  4. RITONAVIR [Concomitant]
     Dosage: UNK
     Route: 048
     Dates: start: 20070128
  5. LAMIVUDINE [Concomitant]
     Dosage: UNK
     Route: 048
     Dates: start: 20070128
  6. ALTACE [Concomitant]
     Dosage: UNK
     Route: 048
     Dates: start: 20040920
  7. LASIX [Concomitant]
     Dosage: UNK
     Route: 048
     Dates: start: 20040920
  8. METOPROLOL [Concomitant]
     Dosage: UNK
     Route: 048
     Dates: start: 20040920
  9. LIPITOR [Concomitant]
     Dosage: UNK
     Route: 048
     Dates: start: 20040920
  10. IMDUR [Concomitant]
     Dosage: UNK
     Route: 048
     Dates: start: 20040920
  11. ATIVAN [Concomitant]
     Dosage: UNK
     Route: 048
     Dates: start: 20020319
  12. AMITRIPTYLINE [Concomitant]
     Dosage: UNK
     Route: 048
     Dates: start: 20010905
  13. FLOMAX [Concomitant]
     Dosage: UNK
     Route: 048
     Dates: start: 20020104
  14. EFFEXOR [Concomitant]
     Dosage: UNK
     Route: 048
     Dates: start: 20020515
  15. CALCIUM [Concomitant]
     Dosage: UNK
     Route: 048
     Dates: start: 20000503

REACTIONS (3)
  - ANAEMIA [None]
  - METASTASES TO LYMPH NODES [None]
  - WEIGHT DECREASED [None]
